FAERS Safety Report 15314276 (Version 1)
Quarter: 2018Q3

REPORT INFORMATION
  Report Type: Spontaneous
  Country: US (occurrence: US)
  Receive Date: 20180824
  Receipt Date: 20180824
  Transmission Date: 20181010
  Serious: No
  Sender: FDA-Public Use
  Company Number: US-PFIZER INC-2018336260

PATIENT
  Age: 62 Year
  Sex: Male
  Weight: 98.88 kg

DRUGS (2)
  1. CHANTIX [Suspect]
     Active Substance: VARENICLINE TARTRATE
     Indication: SMOKING CESSATION THERAPY
     Dosage: 0.5 MG TABLET BY MOUTH ONCE A DAY
     Route: 048
     Dates: start: 201808
  2. CHANTIX [Suspect]
     Active Substance: VARENICLINE TARTRATE
     Dosage: 1 MG TABLET BY MOUTH TWICE A DAY
     Route: 048
     Dates: end: 20180819

REACTIONS (9)
  - Lung disorder [Unknown]
  - Dyspnoea [Recovered/Resolved with Sequelae]
  - Peripheral coldness [Unknown]
  - Balance disorder [Recovering/Resolving]
  - Dizziness postural [Unknown]
  - Feeling abnormal [Unknown]
  - Feeling jittery [Recovering/Resolving]
  - Musculoskeletal stiffness [Recovering/Resolving]
  - Anxiety [Unknown]

NARRATIVE: CASE EVENT DATE: 2018
